FAERS Safety Report 5481249-6 (Version None)
Quarter: 2007Q4

REPORT INFORMATION
  Report Type: 
  Country: None (occurrence: None)
  Receive Date: 20071004
  Receipt Date: 20071004
  Transmission Date: 20080405
  Serious: Yes (Hospitalization)
  Sender: FDA-Public Use
  Company Number: None

PATIENT
  Age: 66 Year
  Sex: Male
  Weight: 71.5 kg

DRUGS (4)
  1. NELFINAVIR 250 MG TABLETS AGOURON PHARM INC. [Suspect]
     Indication: LIPOSARCOMA
     Dosage: 250 MG 1 TABLET TWICE DAILY PO
     Route: 048
     Dates: start: 20070913, end: 20070928
  2. NELFINAVIR 250 MG TABLETS AGOURON PHARM INC. [Suspect]
     Indication: RETROPERITONEAL CANCER
     Dosage: 250 MG 1 TABLET TWICE DAILY PO
     Route: 048
     Dates: start: 20070913, end: 20070928
  3. NELFINAVIR 625 MG TABLETS AGOURON PHARM INC. [Suspect]
     Indication: LIPOSARCOMA
     Dosage: 625 MG 3 TABLETS TWICE DAILY PO
     Route: 048
     Dates: start: 20070913, end: 20070928
  4. NELFINAVIR 625 MG TABLETS AGOURON PHARM INC. [Suspect]
     Indication: RETROPERITONEAL CANCER
     Dosage: 625 MG 3 TABLETS TWICE DAILY PO
     Route: 048
     Dates: start: 20070913, end: 20070928

REACTIONS (10)
  - AGITATION [None]
  - CONFUSIONAL STATE [None]
  - DISEASE PROGRESSION [None]
  - ENCEPHALOPATHY [None]
  - FLANK PAIN [None]
  - GROIN PAIN [None]
  - HALLUCINATION [None]
  - INSOMNIA [None]
  - METABOLIC DISORDER [None]
  - POOR QUALITY SLEEP [None]
